FAERS Safety Report 19473017 (Version 1)
Quarter: 2021Q2

REPORT INFORMATION
  Report Type: Spontaneous
  Country: JP (occurrence: JP)
  Receive Date: 20210629
  Receipt Date: 20210629
  Transmission Date: 20210717
  Serious: Yes (Hospitalization, Other)
  Sender: FDA-Public Use
  Company Number: JP-ELI_LILLY_AND_COMPANY-JP202105008613

PATIENT
  Age: 30 Year
  Sex: Male

DRUGS (4)
  1. OLOPATADINE HYDROCHLORIDE. [Suspect]
     Active Substance: OLOPATADINE HYDROCHLORIDE
     Indication: PRODUCT USED FOR UNKNOWN INDICATION
     Route: 065
  2. ANTEBATE [Suspect]
     Active Substance: BETAMETHASONE DIPROPIONATE
     Indication: PRODUCT USED FOR UNKNOWN INDICATION
     Route: 062
  3. OLUMIANT [Suspect]
     Active Substance: BARICITINIB
     Indication: DERMATITIS ATOPIC
     Dosage: 4 MG, DAILY
     Route: 048
  4. RUPAFIN [Suspect]
     Active Substance: RUPATADINE FUMARATE
     Indication: PRODUCT USED FOR UNKNOWN INDICATION
     Route: 065

REACTIONS (2)
  - Folliculitis [Recovered/Resolved]
  - Staphylococcal infection [Recovered/Resolved]
